FAERS Safety Report 7120810-X (Version None)
Quarter: 2010Q4

REPORT INFORMATION
  Report Type: 
  Country: None (occurrence: None)
  Receive Date: 20101118
  Receipt Date: 20101118
  Transmission Date: 20110411
  Serious: No
  Sender: FDA-Public Use
  Company Number: None

PATIENT
  Sex: Male

DRUGS (8)
  1. LIPITOR [Suspect]
     Dosage: TAKE ONE TABLET BY MOUTH EVERY NIGHT AT BEDTIME
     Route: 048
     Dates: start: 20100601
  2. NEXIUM [Concomitant]
  3. FUROSEMIDE [Concomitant]
  4. GLYBURIDE [Concomitant]
  5. CARVEDILOL [Concomitant]
  6. RANITIDINE [Concomitant]
  7. PLAVIX [Concomitant]
  8. KLOR-CON [Concomitant]

REACTIONS (1)
  - PRODUCT QUALITY ISSUE [None]
